FAERS Safety Report 14981776 (Version 3)
Quarter: 2018Q4

REPORT INFORMATION
  Report Type: Spontaneous
  Country: FR (occurrence: FR)
  Receive Date: 20180607
  Receipt Date: 20181220
  Transmission Date: 20190204
  Serious: Yes (Hospitalization)
  Sender: FDA-Public Use
  Company Number: FR-ACCORD-067830

PATIENT
  Age: 74 Year
  Sex: Male
  Weight: 80.5 kg

DRUGS (21)
  1. PROCORALAN [Suspect]
     Active Substance: IVABRADINE
     Indication: HYPERTENSIVE HEART DISEASE
     Dosage: 15 MILLIGRAM
     Dates: start: 20170808
  2. ROSUVASTATIN/ROSUVASTATIN CALCIUM [Concomitant]
  3. FUROSEMIDE. [Suspect]
     Active Substance: FUROSEMIDE
     Indication: HYPERTENSIVE HEART DISEASE
     Route: 048
     Dates: start: 20170808
  4. ATENOLOL/ATENOLOL HYDROCHLORIDE [Suspect]
     Active Substance: ATENOLOL HYDROCHLORIDE
     Indication: PRODUCT USED FOR UNKNOWN INDICATION
     Route: 048
     Dates: start: 20170808
  5. PREGABALIN. [Suspect]
     Active Substance: PREGABALIN
     Indication: PRODUCT USED FOR UNKNOWN INDICATION
     Dosage: DOSE INCREASED
     Route: 048
     Dates: start: 201708
  6. TAMSULOSIN/TAMSULOSIN HYDROCHLORIDE [Concomitant]
  7. HUMALOG [Concomitant]
     Active Substance: INSULIN LISPRO
     Dosage: MIX 50 (UNITS UNSPECIFIED)
  8. PYRIDOSTIGMINE/PYRIDOSTIGMINE BROMIDE [Concomitant]
     Dates: end: 20170803
  9. RAMIPRIL. [Suspect]
     Active Substance: RAMIPRIL
     Indication: HYPERTENSION
     Dosage: ALSO RECEIVED AT DOSE OF 2.5 MG DAILY FROM LONG TERM
     Route: 048
     Dates: start: 201708
  10. KARDEGIC [Concomitant]
     Active Substance: ASPIRIN DL-LYSINE
  11. BILASTINE [Concomitant]
     Active Substance: BILASTINE
     Dates: end: 20170803
  12. SPIRIVA [Concomitant]
     Active Substance: TIOTROPIUM BROMIDE MONOHYDRATE
  13. SPIRONOLACTONE. [Concomitant]
     Active Substance: SPIRONOLACTONE
     Dates: end: 201708
  14. METOPROLOL. [Concomitant]
     Active Substance: METOPROLOL
     Dates: end: 20170803
  15. TARDYFERON [Concomitant]
     Active Substance: FERROUS SULFATE
     Dates: end: 20170803
  16. ACETYLLEUCINE/ACETYLLEUCINE LYSINE [Concomitant]
     Dates: end: 20170803
  17. LEVOTHYROX 25 [Suspect]
     Active Substance: LEVOTHYROXINE SODIUM
     Indication: HYPOTHYROIDISM
     Dosage: SCORED TABLET
     Route: 048
     Dates: start: 20170808
  18. BROMAZEPAM [Suspect]
     Active Substance: BROMAZEPAM
     Indication: PRODUCT USED FOR UNKNOWN INDICATION
     Dosage: 1.5 MG/DAY
     Route: 048
     Dates: start: 20170808
  19. SYMBICORT [Concomitant]
     Active Substance: BUDESONIDE\FORMOTEROL FUMARATE DIHYDRATE
  20. EUCREAS [Concomitant]
     Active Substance: METFORMIN HYDROCHLORIDE\VILDAGLIPTIN
     Dosage: 50 MG/1000 MG
  21. VITAMIN B12 [Concomitant]
     Active Substance: CYANOCOBALAMIN

REACTIONS (1)
  - Lichenoid keratosis [Recovered/Resolved]

NARRATIVE: CASE EVENT DATE: 201708
